FAERS Safety Report 4775215-3 (Version None)
Quarter: 2005Q3

REPORT INFORMATION
  Report Type: 
  Country: None (occurrence: None)
  Receive Date: 20050921
  Receipt Date: 20050301
  Transmission Date: 20060218
  Serious: Yes (Death, Life-Threatening, Hospitalization, Other)
  Sender: FDA-Public Use
  Company Number: US-MERCK-0503USA00111

PATIENT
  Age: 73 Year
  Sex: Female

DRUGS (1)
  1. VIOXX [Suspect]
     Route: 048
     Dates: start: 20010601, end: 20040101

REACTIONS (20)
  - ANOREXIA [None]
  - CARDIAC FAILURE CONGESTIVE [None]
  - DEATH [None]
  - DIVERTICULUM [None]
  - DYSPNOEA [None]
  - EJECTION FRACTION DECREASED [None]
  - GASTRITIS [None]
  - GASTRITIS EROSIVE [None]
  - HAEMOGLOBIN DECREASED [None]
  - HYPOCHROMIC ANAEMIA [None]
  - IRON DEFICIENCY ANAEMIA [None]
  - JOINT SPRAIN [None]
  - MITRAL VALVE INCOMPETENCE [None]
  - MUSCLE STRAIN [None]
  - OSTEOARTHRITIS [None]
  - PAIN IN EXTREMITY [None]
  - RED BLOOD CELL COUNT DECREASED [None]
  - VENTRICULAR DYSFUNCTION [None]
  - VENTRICULAR HYPERTROPHY [None]
  - WEIGHT DECREASED [None]
